FAERS Safety Report 4602827-X (Version None)
Quarter: 2005Q1

REPORT INFORMATION
  Report Type: 
  Country: None (occurrence: None)
  Receive Date: 20050307
  Receipt Date: 20050225
  Transmission Date: 20050727
  Serious: Yes (Life-Threatening)
  Sender: FDA-Public Use
  Company Number: 6013280

PATIENT
  Age: 81 Year
  Sex: Female

DRUGS (6)
  1. CARDENSIEL (1.25 MG, TABLET) (BISOPROLOL) [Suspect]
     Dosage: 1,25 MG (1,25 MG, 1 IN 1 D), ORAL
     Route: 048
     Dates: start: 20040611, end: 20040826
  2. MONO-TILDIEM (300 MG, CAPSULE) (DILTIAZEM HYDROCHLORIDE) [Suspect]
     Dosage: 300 MG (300 MG , 1 IN 1 D)
     Dates: end: 20040826
  3. ALDACTAZINE (TABLET) (SPIRONOLACTONE, ALTIZIDE) [Concomitant]
  4. COVERSYL (2 MG, TABLET)(PERINDOPRIL) [Concomitant]
  5. PLAVIX (TABLET) (CLOPIDOGREL SULFATE) [Concomitant]
  6. LASILIX (40 MG, TABLET)(FUROSEMIDE) [Concomitant]

REACTIONS (8)
  - ATRIOVENTRICULAR BLOCK [None]
  - BRADYCARDIA [None]
  - BUNDLE BRANCH BLOCK LEFT [None]
  - ELECTROCARDIOGRAM QRS COMPLEX PROLONGED [None]
  - MALAISE [None]
  - PANCREATITIS ACUTE [None]
  - TORSADE DE POINTES [None]
  - VENTRICULAR EXTRASYSTOLES [None]
